FAERS Safety Report 8182380 (Version 3)
Quarter: 2013Q1

REPORT INFORMATION
  Report Type: Spontaneous
  Country: US (occurrence: US)
  Receive Date: 20111014
  Receipt Date: 20130320
  Transmission Date: 20140127
  Serious: Yes (Other)
  Sender: FDA-Public Use
  Company Number: US-ROCHE-1000970

PATIENT
  Sex: Male
  Weight: 59.02 kg

DRUGS (1)
  1. ACCUTANE [Suspect]
     Indication: ACNE
     Route: 048
     Dates: start: 19990210, end: 19990701

REACTIONS (2)
  - Irritable bowel syndrome [Unknown]
  - Crohn^s disease [Unknown]
